FAERS Safety Report 23062407 (Version 7)
Quarter: 2024Q1

REPORT INFORMATION
  Report Type: Spontaneous
  Country: US (occurrence: US)
  Receive Date: 20231013
  Receipt Date: 20240229
  Transmission Date: 20240410
  Serious: Yes (Other)
  Sender: FDA-Public Use
  Company Number: US-BEH-2023164052

PATIENT
  Age: 24 Year
  Sex: Female

DRUGS (9)
  1. HAEGARDA [Suspect]
     Active Substance: HUMAN C1-ESTERASE INHIBITOR
     Indication: Hereditary angioedema
     Dosage: 3000 INTERNATIONAL UNIT, BIW
     Route: 058
     Dates: start: 202208
  2. HAEGARDA [Suspect]
     Active Substance: HUMAN C1-ESTERASE INHIBITOR
     Indication: Prophylaxis
     Dosage: 3000 INTERNATIONAL UNIT, BIW
     Route: 058
     Dates: start: 202203
  3. HAEGARDA [Suspect]
     Active Substance: HUMAN C1-ESTERASE INHIBITOR
     Dosage: 5000 INTERNATIONAL UNIT, BIW
     Route: 058
     Dates: start: 202208
  4. HAEGARDA [Suspect]
     Active Substance: HUMAN C1-ESTERASE INHIBITOR
     Indication: Hereditary angioedema
     Dosage: 2000 INTERNATIONAL UNIT, BIW
     Route: 058
     Dates: start: 202208
  5. HAEGARDA [Suspect]
     Active Substance: HUMAN C1-ESTERASE INHIBITOR
     Indication: Prophylaxis
     Dosage: 2000 INTERNATIONAL UNIT, BIW
     Route: 058
     Dates: start: 202203
  6. HAEGARDA [Suspect]
     Active Substance: HUMAN C1-ESTERASE INHIBITOR
     Dosage: 5000 INTERNATIONAL UNIT, BIW
     Route: 058
     Dates: start: 202208
  7. CAFFEINE [Suspect]
     Active Substance: CAFFEINE
     Indication: Product used for unknown indication
     Dosage: UNK
     Route: 065
  8. SODIUM CHLORIDE [Concomitant]
     Active Substance: SODIUM CHLORIDE
  9. TAKHZYRO [Concomitant]
     Active Substance: LANADELUMAB-FLYO

REACTIONS (27)
  - Hereditary angioedema [Unknown]
  - Maternal exposure during breast feeding [Unknown]
  - Hereditary angioedema [Unknown]
  - Maternal exposure during breast feeding [Unknown]
  - Hereditary angioedema [Recovered/Resolved]
  - Maternal exposure during breast feeding [Recovered/Resolved]
  - Hereditary angioedema [Recovered/Resolved]
  - Maternal exposure during breast feeding [Recovered/Resolved]
  - Hereditary angioedema [Recovered/Resolved]
  - Maternal exposure during breast feeding [Recovered/Resolved]
  - Hereditary angioedema [Recovered/Resolved]
  - Maternal exposure during breast feeding [Recovered/Resolved]
  - No adverse event [Unknown]
  - Product dose omission in error [Unknown]
  - Hereditary angioedema [Recovered/Resolved]
  - Hereditary angioedema [Recovered/Resolved]
  - Hereditary angioedema [Recovered/Resolved]
  - Hereditary angioedema [Unknown]
  - Hereditary angioedema [Unknown]
  - Hereditary angioedema [Unknown]
  - Hereditary angioedema [Unknown]
  - Hereditary angioedema [Unknown]
  - Therapeutic product effect incomplete [Unknown]
  - Stress [Unknown]
  - Sleep deficit [Unknown]
  - Ill-defined disorder [Unknown]
  - Hereditary angioedema [Unknown]

NARRATIVE: CASE EVENT DATE: 20231016
